FAERS Safety Report 9432581 (Version 1)
Quarter: 2013Q3

REPORT INFORMATION
  Report Type: Spontaneous
  Country: US (occurrence: US)
  Receive Date: 20130731
  Receipt Date: 20130731
  Transmission Date: 20140515
  Serious: Yes (Other)
  Sender: FDA-Public Use
  Company Number: US-PFIZER INC-2012192104

PATIENT
  Age: 48 Year
  Sex: Female
  Weight: 77 kg

DRUGS (8)
  1. LYRICA [Suspect]
     Indication: HYPOAESTHESIA
     Dosage: 100 MG, 2X/DAY
     Route: 048
     Dates: start: 201207
  2. LYRICA [Suspect]
     Indication: NEURALGIA
  3. CYMBALTA [Concomitant]
     Dosage: 100 MG, UNK
  4. CYMBALTA [Concomitant]
     Dosage: 100 MG, UNK
  5. LOSARTAN [Concomitant]
     Dosage: 50 MG, UNK
  6. ALLOPURINOL [Concomitant]
     Dosage: 100 MG, UNK
  7. HYDROCHLOROTHIAZID [Concomitant]
     Dosage: 25 MG, UNK
  8. TRAZODONE [Concomitant]
     Dosage: 150 MG, UNK

REACTIONS (6)
  - Off label use [Unknown]
  - Rheumatoid arthritis [Unknown]
  - Fibromyalgia [Unknown]
  - Red blood cell sedimentation rate increased [Unknown]
  - Visual impairment [Unknown]
  - Visual acuity reduced [Unknown]
